FAERS Safety Report 6390870-2 (Version None)
Quarter: 2009Q4

REPORT INFORMATION
  Report Type: 
  Country: None (occurrence: None)
  Receive Date: 20091003
  Receipt Date: 20090917
  Transmission Date: 20100525
  Serious: Yes (Other)
  Sender: FDA-Public Use
  Company Number: AUR-APL-2009-00681

PATIENT
  Age: 23 Year
  Sex: Male

DRUGS (5)
  1. ONDANSETRON INJECTABLE [Suspect]
     Dosage: 4 MG - X1- IV
     Route: 042
     Dates: start: 20090805
  2. FENTANYL [Concomitant]
  3. HARTMANN'S SOLUTION [Concomitant]
  4. PROPOFOL [Concomitant]
  5. HYDROCORTISONE [Concomitant]

REACTIONS (3)
  - CONVULSION [None]
  - DRUG HYPERSENSITIVITY [None]
  - LOSS OF CONSCIOUSNESS [None]
